FAERS Safety Report 7205499-3 (Version None)
Quarter: 2010Q4

REPORT INFORMATION
  Report Type: 
  Country: None (occurrence: None)
  Receive Date: 20101231
  Receipt Date: 20101221
  Transmission Date: 20110411
  Serious: Yes (Hospitalization, Other)
  Sender: FDA-Public Use
  Company Number: PHHY2009JP56806

PATIENT
  Sex: Female
  Weight: 44 kg

DRUGS (19)
  1. NEORAL [Suspect]
     Indication: LUNG TRANSPLANT
     Dosage: 300-375 MG DAILY
     Route: 048
     Dates: start: 20070828, end: 20070901
  2. NEORAL [Suspect]
     Dosage: 120 TO 300 MG DAILY
     Dates: start: 20080818
  3. NEORAL [Suspect]
     Dosage: 75 TO 200 MG
     Dates: start: 20090824
  4. NEORAL [Suspect]
     Dosage: 350 MG DAILY
     Route: 048
     Dates: start: 20070901, end: 20071217
  5. NEORAL [Suspect]
     Dosage: 320 MG DAILY
     Route: 048
     Dates: start: 20071218, end: 20080110
  6. NEORAL [Suspect]
     Dosage: 320 MG DAILY
     Route: 048
     Dates: start: 20080111, end: 20080222
  7. NEORAL [Suspect]
     Dosage: 300 MG DAILY
     Route: 048
     Dates: start: 20080223
  8. SANDIMMUNE [Suspect]
     Indication: LUNG TRANSPLANT
     Dosage: 48 MG DAILY
     Route: 042
     Dates: start: 20070819, end: 20070820
  9. SANDIMMUNE [Suspect]
     Dosage: 96 MG DAILY
     Route: 042
     Dates: start: 20070821, end: 20070822
  10. SANDIMMUNE [Suspect]
     Dosage: 132 MG DAILY
     Route: 042
     Dates: start: 20070823, end: 20070823
  11. SANDIMMUNE [Suspect]
     Dosage: 168 MG DAILY
     Route: 042
     Dates: start: 20070824, end: 20070824
  12. SANDIMMUNE [Suspect]
     Dosage: 144 MG DAILY
     Route: 042
     Dates: start: 20070825, end: 20070827
  13. CELLCEPT [Suspect]
     Indication: LUNG TRANSPLANT
     Dosage: 1500 MG DAILY
     Route: 048
     Dates: start: 20070827
  14. CELLCEPT [Suspect]
     Dosage: 500 MG DAILY
  15. PREDONINE [Suspect]
     Indication: LUNG TRANSPLANT
     Dosage: 10-40 MG DAILY
     Route: 048
     Dates: start: 20070827
  16. PREDONINE [Suspect]
     Dosage: 7.5 MG DAILY
  17. SOL MEDROL [Concomitant]
     Indication: LUNG TRANSPLANT
     Dosage: 50 MG, UNK
     Route: 042
     Dates: start: 20070819, end: 20070826
  18. IMURAN [Concomitant]
     Indication: LUNG TRANSPLANT
     Dosage: 200 MG
     Route: 048
     Dates: start: 20070818, end: 20070826
  19. IMURAN [Concomitant]
     Dosage: 100 MG
     Route: 048

REACTIONS (13)
  - ASPERGILLOSIS [None]
  - ATYPICAL MYCOBACTERIAL INFECTION [None]
  - CARDIAC FAILURE [None]
  - COUGH [None]
  - CYTOMEGALOVIRUS INFECTION [None]
  - DYSPNOEA [None]
  - LUNG TRANSPLANT REJECTION [None]
  - PLEURODESIS [None]
  - PNEUMOTHORAX [None]
  - PO2 DECREASED [None]
  - PYREXIA [None]
  - THORACIC CAVITY DRAINAGE [None]
  - UPPER RESPIRATORY FUNGAL INFECTION [None]
